FAERS Safety Report 6443001-4 (Version None)
Quarter: 2009Q4

REPORT INFORMATION
  Report Type: 
  Country: None (occurrence: None)
  Receive Date: 20091117
  Receipt Date: 20091103
  Transmission Date: 20100525
  Serious: Yes (Hospitalization, Other)
  Sender: FDA-Public Use
  Company Number: PHHY2009BR48011

PATIENT
  Sex: Male
  Weight: 65 kg

DRUGS (3)
  1. FORASEQ [Suspect]
     Indication: BRONCHITIS
     Dosage: 12/400 UG EVERY 12 HOURS
  2. DUOMO [Concomitant]
     Indication: BENIGN PROSTATIC HYPERPLASIA
     Dosage: UNK
     Dates: start: 20090401
  3. ANTIBIOTICS [Concomitant]

REACTIONS (11)
  - BRONCHITIS [None]
  - DEVICE LEAKAGE [None]
  - DYSPHONIA [None]
  - HAEMORRHAGE [None]
  - HEAD INJURY [None]
  - HEADACHE [None]
  - HYPOKINESIA [None]
  - NERVOUS SYSTEM DISORDER [None]
  - SURGERY [None]
  - SYNCOPE [None]
  - THROMBOSIS [None]
